FAERS Safety Report 9559351 (Version 1)
Quarter: 2013Q3

REPORT INFORMATION
  Report Type: Spontaneous
  Country: US (occurrence: None)
  Receive Date: 20130913
  Receipt Date: 20130913
  Transmission Date: 20140515
  Serious: No
  Sender: FDA-Public Use
  Company Number: 1000044207

PATIENT
  Age: 72 Year
  Sex: Female
  Weight: 59.42 kg

DRUGS (6)
  1. DALIRESP [Suspect]
     Indication: CHRONIC OBSTRUCTIVE PULMONARY DISEASE
     Route: 048
     Dates: start: 201212
  2. ADVAIR (SERETIDE) [Concomitant]
  3. HYZAAR [Concomitant]
  4. TRAZODONE [Concomitant]
  5. RESTASIS (CICLOSPORIN) [Concomitant]
  6. AMLODIPINE [Concomitant]

REACTIONS (2)
  - Arthralgia [None]
  - Weight decreased [None]
